FAERS Safety Report 12108699 (Version 1)
Quarter: 2016Q1

REPORT INFORMATION
  Report Type: Spontaneous
  Country: IT (occurrence: IT)
  Receive Date: 20160224
  Receipt Date: 20160224
  Transmission Date: 20160526
  Serious: Yes (Other)
  Sender: FDA-Public Use
  Company Number: IT-ACCORD-037975

PATIENT
  Age: 5 Year
  Sex: Female
  Weight: 22 kg

DRUGS (4)
  1. TRAMADOL/TRAMADOL HYDROCHLORIDE [Suspect]
     Active Substance: TRAMADOL HYDROCHLORIDE
     Indication: PROCEDURAL PAIN
     Route: 042
     Dates: start: 20160209, end: 20160209
  2. PARACETAMOL [Suspect]
     Active Substance: ACETAMINOPHEN
     Indication: PROCEDURAL PAIN
     Route: 042
     Dates: start: 20160209, end: 20160209
  3. CEFAMEZIN [Suspect]
     Active Substance: CEFAZOLIN
     Indication: ANTIBIOTIC PROPHYLAXIS
     Route: 042
     Dates: start: 20160209, end: 20160209
  4. DEXAMETHASONE. [Suspect]
     Active Substance: DEXAMETHASONE
     Indication: PROCEDURAL PAIN
     Dates: start: 20160209, end: 20160209

REACTIONS (2)
  - Pruritus generalised [Recovering/Resolving]
  - Erythema migrans [Recovering/Resolving]
